FAERS Safety Report 11769802 (Version 3)
Quarter: 2015Q4

REPORT INFORMATION
  Report Type: Spontaneous
  Country: JP (occurrence: JP)
  Receive Date: 20151123
  Receipt Date: 20151230
  Transmission Date: 20160304
  Serious: Yes (Hospitalization)
  Sender: FDA-Public Use
  Company Number: JP-009507513-1511JPN012495

PATIENT
  Age: 78 Year
  Sex: Male
  Weight: 58 kg

DRUGS (2)
  1. LOSARTAN POTASSIUM. [Suspect]
     Active Substance: LOSARTAN POTASSIUM
     Dosage: DAILY DOSAGE UNKNOWN; FORMULATION PREORAL PREPARATION IN UNKNOWN DOSAGE FORMS (POR)
     Route: 048
     Dates: end: 20150114
  2. JANUVIA [Suspect]
     Active Substance: SITAGLIPTIN PHOSPHATE
     Dosage: DAILY DOSAGE UNKNOWN
     Route: 048
     Dates: end: 20150114

REACTIONS (1)
  - Drug eruption [Recovering/Resolving]

NARRATIVE: CASE EVENT DATE: 201412
